FAERS Safety Report 23184938 (Version 1)
Quarter: 2023Q4

REPORT INFORMATION
  Report Type: Spontaneous
  Country: CN (occurrence: CN)
  Receive Date: 20231115
  Receipt Date: 20231115
  Transmission Date: 20240109
  Serious: Yes (Hospitalization, Other)
  Sender: FDA-Public Use
  Company Number: CN-NOVITIUMPHARMA-2023CNNVP01940

PATIENT
  Age: 59 Year
  Sex: Female

DRUGS (4)
  1. PREDNISONE [Suspect]
     Active Substance: PREDNISONE
     Indication: Acute leukaemia
  2. DECITABINE [Concomitant]
     Active Substance: DECITABINE
     Indication: Acute leukaemia
  3. IDARUBICIN [Concomitant]
     Active Substance: IDARUBICIN
     Indication: Acute leukaemia
  4. VINDESINE [Concomitant]
     Active Substance: VINDESINE
     Indication: Acute leukaemia

REACTIONS (5)
  - Acinetobacter infection [Recovering/Resolving]
  - Pseudomonas infection [Recovering/Resolving]
  - Respiratory failure [Recovering/Resolving]
  - Septic shock [Recovering/Resolving]
  - Cytokine storm [Recovering/Resolving]
